FAERS Safety Report 18624196 (Version 3)
Quarter: 2021Q2

REPORT INFORMATION
  Report Type: Report from Study
  Country: None (occurrence: JP)
  Receive Date: 20201216
  Receipt Date: 20210426
  Transmission Date: 20210717
  Serious: Yes (Death, Hospitalization)
  Sender: FDA-Public Use
  Company Number: JP-ABBVIE-20K-087-3694951-00

PATIENT
  Age: 69 Year
  Sex: Male
  Weight: 55 kg

DRUGS (5)
  1. DUODOPA [Suspect]
     Active Substance: CARBIDOPA\LEVODOPA
     Dosage: MD: 10.0 ML, CD: 2.8 ML/HR X 16 HR, ED: 1.0 ML/UNIT X 5
     Route: 050
     Dates: start: 20170417, end: 2017
  2. DUODOPA [Suspect]
     Active Substance: CARBIDOPA\LEVODOPA
     Indication: PARKINSON^S DISEASE
     Dosage: MD: 8.0 ML, CD: 2.6 ML/HR X 16 HR, ED: 1.0 ML/UNIT X 5
     Route: 050
     Dates: start: 20170415, end: 20170417
  3. DROXIDOPA [Concomitant]
     Active Substance: DROXIDOPA
     Indication: PARKINSON^S DISEASE
     Route: 048
  4. DUODOPA [Suspect]
     Active Substance: CARBIDOPA\LEVODOPA
     Route: 050
     Dates: start: 201705
  5. ROTIGOTINE [Concomitant]
     Active Substance: ROTIGOTINE
     Indication: PARKINSON^S DISEASE
     Route: 062

REACTIONS (7)
  - Hypophagia [Unknown]
  - General physical health deterioration [Unknown]
  - Device issue [Unknown]
  - Device alarm issue [Unknown]
  - Pneumonia [Fatal]
  - Fatigue [Unknown]
  - Device use issue [Unknown]

NARRATIVE: CASE EVENT DATE: 2017
